FAERS Safety Report 9055418 (Version 2)
Quarter: 2015Q1

REPORT INFORMATION
  Report Type: Spontaneous
  Country: GB (occurrence: GB)
  Receive Date: 20130206
  Receipt Date: 20150121
  Transmission Date: 20150721
  Serious: Yes (Death, Hospitalization, Other)
  Sender: FDA-Public Use
  Company Number: GB-WATSON-2013-00596

PATIENT
  Age: 58 Year
  Sex: Male
  Weight: 70 kg

DRUGS (21)
  1. CLARITHROMYCIN (UNKNOWN) [Suspect]
     Active Substance: CLARITHROMYCIN
     Indication: PRODUCT USED FOR UNKNOWN INDICATION
     Dosage: UNKNOWN
     Route: 065
     Dates: start: 20121011
  2. KIVEXA [Suspect]
     Active Substance: ABACAVIR SULFATE\LAMIVUDINE
     Indication: HIV INFECTION
     Dosage: UNKNOWN
     Route: 065
     Dates: start: 20120816, end: 20120913
  3. CHLORPHENIRAMINE MALEATE. [Concomitant]
     Active Substance: CHLORPHENIRAMINE MALEATE
     Indication: PRODUCT USED FOR UNKNOWN INDICATION
     Dosage: UNK
     Route: 065
  4. RANITIDINE HYDROCHLORIDE. [Concomitant]
     Active Substance: RANITIDINE HYDROCHLORIDE
     Indication: PRODUCT USED FOR UNKNOWN INDICATION
     Dosage: UNK
     Route: 065
  5. SEPTRIN [Suspect]
     Active Substance: SULFAMETHOXAZOLE\TRIMETHOPRIM
     Indication: PRODUCT USED FOR UNKNOWN INDICATION
     Dosage: 960 MG, DAILY
     Route: 065
     Dates: start: 20120803, end: 20120830
  6. KIVEXA [Suspect]
     Active Substance: ABACAVIR SULFATE\LAMIVUDINE
     Dosage: 1 A DAY WITH KALETRA
     Route: 065
     Dates: start: 20121109
  7. NIFEDIPINE. [Concomitant]
     Active Substance: NIFEDIPINE
     Indication: PRODUCT USED FOR UNKNOWN INDICATION
     Dosage: 10MG PER DAY
     Route: 065
     Dates: start: 20120628
  8. FLUCONAZOLE. [Concomitant]
     Active Substance: FLUCONAZOLE
     Indication: PRODUCT USED FOR UNKNOWN INDICATION
     Dosage: UNK UNK, DAILY
     Route: 065
     Dates: start: 20121011
  9. KALETRA [Suspect]
     Active Substance: LOPINAVIR\RITONAVIR
     Dosage: 100 MG, DAILY
     Route: 048
     Dates: start: 20121019
  10. RALTEGRAVIR [Suspect]
     Active Substance: RALTEGRAVIR
     Indication: HIV INFECTION
     Dosage: 400 MG, BID
     Route: 065
     Dates: start: 20120816, end: 20120917
  11. ABACAVIR [Suspect]
     Active Substance: ABACAVIR
     Indication: HIV INFECTION
     Dosage: G00 MG, DAILY
     Route: 048
     Dates: start: 20120816, end: 20120917
  12. PREDNISOLONE. [Concomitant]
     Active Substance: PREDNISOLONE
     Indication: PRODUCT USED FOR UNKNOWN INDICATION
     Dosage: UNK
     Route: 065
  13. ATORVASTATIN CALCIUM. [Concomitant]
     Active Substance: ATORVASTATIN CALCIUM
     Indication: PRODUCT USED FOR UNKNOWN INDICATION
     Dosage: 10 MG PER DAY
     Route: 065
     Dates: start: 20120925
  14. KALETRA [Suspect]
     Active Substance: LOPINAVIR\RITONAVIR
     Indication: HIV INFECTION
     Dosage: UNK UNK, DAILY
     Route: 065
     Dates: start: 20121107
  15. ABACAVIR W/LAMIVUDINE [Suspect]
     Active Substance: ABACAVIR\LAMIVUDINE
     Indication: PRODUCT USED FOR UNKNOWN INDICATION
     Dosage: UNK
     Route: 065
     Dates: start: 20121107
  16. DAPSONE (UNKNOWN) [Suspect]
     Active Substance: DAPSONE
     Indication: PRODUCT USED FOR UNKNOWN INDICATION
     Dosage: 600 MG, DAILY
     Route: 065
     Dates: start: 20120830, end: 20120910
  17. DARUNAVIR [Suspect]
     Active Substance: DARUNAVIR
     Indication: HIV INFECTION
     Dosage: 800 MG, DAILY
     Route: 065
     Dates: start: 20120816, end: 20120917
  18. BISOPROLOL [Concomitant]
     Active Substance: BISOPROLOL
     Indication: PRODUCT USED FOR UNKNOWN INDICATION
     Dosage: UNK
     Route: 065
  19. ACYCLOVIR                          /00587301/ [Concomitant]
     Active Substance: ACYCLOVIR
     Indication: PRODUCT USED FOR UNKNOWN INDICATION
     Dosage: UNK UNK, UNKNOWN
     Route: 065
     Dates: start: 20121011
  20. NORVIR [Suspect]
     Active Substance: RITONAVIR
     Indication: HIV INFECTION
     Dosage: 100 MG, DAILY
     Dates: start: 20120816, end: 20120917
  21. AZITHROMYCIN [Concomitant]
     Active Substance: AZITHROMYCIN ANHYDROUS
     Indication: PRODUCT USED FOR UNKNOWN INDICATION
     Dosage: UNK UNK, UNKNOWN
     Route: 065

REACTIONS (33)
  - HIV associated nephropathy [Fatal]
  - Rash maculo-papular [Fatal]
  - Nausea [Fatal]
  - Blood alkaline phosphatase abnormal [Fatal]
  - Hepatic function abnormal [Fatal]
  - Pyrexia [Fatal]
  - Liver disorder [Unknown]
  - Induration [Unknown]
  - Liver function test abnormal [Fatal]
  - Coronary artery disease [Fatal]
  - Dermatitis [Fatal]
  - Abdominal pain [Fatal]
  - Drug interaction [Fatal]
  - Alanine aminotransferase abnormal [Fatal]
  - White blood cell count increased [Fatal]
  - Oedema [Fatal]
  - Tachycardia [Fatal]
  - Eosinophil count increased [Fatal]
  - C-reactive protein increased [Fatal]
  - Drug reaction with eosinophilia and systemic symptoms [Fatal]
  - Renal impairment [Unknown]
  - Hypotension [Unknown]
  - Rash [Fatal]
  - Lymphocyte count increased [Fatal]
  - Skin exfoliation [Fatal]
  - Metabolic acidosis [Fatal]
  - Toxic epidermal necrolysis [Fatal]
  - Pruritus generalised [Fatal]
  - Diarrhoea [Fatal]
  - Platelet count decreased [Fatal]
  - Thrombocytopenia [Fatal]
  - Malaise [Fatal]
  - Asthenia [Fatal]

NARRATIVE: CASE EVENT DATE: 20120910
